FAERS Safety Report 17229830 (Version 1)
Quarter: 2020Q1

REPORT INFORMATION
  Report Type: Report from Study
  Country: GB (occurrence: GB)
  Receive Date: 20200103
  Receipt Date: 20200103
  Transmission Date: 20200409
  Serious: Yes (Other)
  Sender: FDA-Public Use
  Company Number: NVSC2019GB028494

PATIENT
  Age: 56 Year

DRUGS (9)
  1. BLINDED LEE011 [Suspect]
     Active Substance: RIBOCICLIB
     Dosage: 600 MG, QD
     Route: 048
     Dates: start: 201710, end: 201711
  2. BLINDED LEE011 [Suspect]
     Active Substance: RIBOCICLIB
     Indication: BREAST CANCER METASTATIC
     Dosage: 600 MG, QD (FOR 4 CYCLES)
     Route: 048
     Dates: start: 201707, end: 201710
  3. BLINDED NO TREATMENT RECEIVED [Suspect]
     Active Substance: INVESTIGATIONAL PRODUCT
     Indication: BREAST CANCER METASTATIC
     Dosage: 600 MG, QD (FOR 4 CYCLES)
     Route: 048
     Dates: start: 201707, end: 201710
  4. BLINDED PLACEBO [Suspect]
     Active Substance: INVESTIGATIONAL PRODUCT
     Dosage: 600 MG, QD
     Route: 048
     Dates: start: 201710, end: 201711
  5. BLINDED LEE011 [Suspect]
     Active Substance: RIBOCICLIB
     Dosage: 600 MG, QD
     Route: 048
     Dates: start: 201710, end: 201711
  6. BLINDED NO TREATMENT RECEIVED [Suspect]
     Active Substance: INVESTIGATIONAL PRODUCT
     Dosage: 600 MG, QD
     Route: 048
     Dates: start: 201710, end: 201711
  7. FULVESTRANT COMP-FULV+SOLINJ [Suspect]
     Active Substance: FULVESTRANT
     Indication: BREAST CANCER METASTATIC
     Route: 030
  8. BLINDED LEE011 [Suspect]
     Active Substance: RIBOCICLIB
     Indication: BREAST CANCER METASTATIC
     Dosage: 600 MG, QD (FOR 4 CYCLES)
     Route: 048
     Dates: start: 201707, end: 201710
  9. BLINDED PLACEBO [Suspect]
     Active Substance: INVESTIGATIONAL PRODUCT
     Indication: BREAST CANCER METASTATIC
     Dosage: 600 MG, QD (FOR 4 CYCLES)
     Route: 048
     Dates: start: 201707, end: 201710

REACTIONS (2)
  - Liver function test increased [Unknown]
  - Neutropenia [Recovered/Resolved]

NARRATIVE: CASE EVENT DATE: 201708
